FAERS Safety Report 18361476 (Version 1)
Quarter: 2020Q4

REPORT INFORMATION
  Report Type: Report from Study
  Country: US (occurrence: US)
  Receive Date: 20201008
  Receipt Date: 20201008
  Transmission Date: 20210114
  Serious: Yes (Death, Hospitalization, Other)
  Sender: FDA-Public Use
  Company Number: US-PFIZER INC-2018235633

PATIENT
  Age: 77 Year
  Sex: Female

DRUGS (1)
  1. IBRANCE [Suspect]
     Active Substance: PALBOCICLIB
     Indication: BREAST CANCER FEMALE
     Dosage: 125 MG, CYCLIC (DAILY FOR 21 DAYS IN A ROW, FOLLOWED BY 7 DAYS OFF EVERY 28 DAYS)
     Route: 048
     Dates: start: 20180523

REACTIONS (12)
  - Fatigue [Not Recovered/Not Resolved]
  - Ageusia [Unknown]
  - Dizziness [Not Recovered/Not Resolved]
  - Pollakiuria [Unknown]
  - White blood cell count decreased [Not Recovered/Not Resolved]
  - Infection [Unknown]
  - Urinary tract infection [Unknown]
  - Death [Fatal]
  - Rhinorrhoea [Unknown]
  - Liver disorder [Unknown]
  - Aortic valve disease [Unknown]
  - Neoplasm progression [Unknown]

NARRATIVE: CASE EVENT DATE: 2018
